FAERS Safety Report 11152957 (Version 5)
Quarter: 2015Q4

REPORT INFORMATION
  Report Type: Spontaneous
  Country: US (occurrence: None)
  Receive Date: 20150522
  Receipt Date: 20151214
  Transmission Date: 20160304
  Serious: Yes (Other)
  Sender: FDA-Public Use
  Company Number: ADR-2015-00942

PATIENT
  Age: 45 Year
  Sex: Male

DRUGS (2)
  1. BACLOFEN INTRATHECAL [Suspect]
     Active Substance: BACLOFEN
     Indication: PAIN
  2. PRIALT [Suspect]
     Active Substance: ZICONOTIDE ACETATE

REACTIONS (15)
  - Fluid retention [None]
  - No therapeutic response [None]
  - Bipolar disorder [None]
  - Abasia [None]
  - Anxiety [None]
  - Abnormal behaviour [None]
  - Joint swelling [None]
  - Unevaluable event [None]
  - Drug withdrawal syndrome [None]
  - Swelling [None]
  - Diarrhoea [None]
  - Condition aggravated [None]
  - Pain [None]
  - Hallucination [None]
  - Seroma [None]
